FAERS Safety Report 9012734 (Version 1)
Quarter: 2013Q1

REPORT INFORMATION
  Report Type: Report from Study
  Country: AU (occurrence: AU)
  Receive Date: 20130114
  Receipt Date: 20130114
  Transmission Date: 20140127
  Serious: Yes (Hospitalization)
  Sender: FDA-Public Use
  Company Number: AU-TEVA-380465USA

PATIENT
  Age: 55 Year
  Sex: Female
  Weight: 116 kg

DRUGS (2)
  1. TREANDA [Suspect]
     Indication: B-CELL LYMPHOMA
     Route: 042
     Dates: start: 20111213
  2. OBINUTUZUMAB [Suspect]
     Indication: B-CELL LYMPHOMA
     Dosage: 36 ML ONCE IN THREE WEEKS
     Route: 042
     Dates: start: 20111212

REACTIONS (2)
  - Thrombophlebitis [Recovered/Resolved]
  - Infusion related reaction [Recovered/Resolved]
